FAERS Safety Report 6079486-5 (Version None)
Quarter: 2009Q1

REPORT INFORMATION
  Report Type: 
  Country: None (occurrence: None)
  Receive Date: 20090216
  Receipt Date: 20090205
  Transmission Date: 20090719
  Serious: Yes (Hospitalization)
  Sender: FDA-Public Use
  Company Number: DE-AMGEN-US332924

PATIENT
  Sex: Female
  Weight: 59 kg

DRUGS (4)
  1. ENBREL [Suspect]
     Indication: RHEUMATOID ARTHRITIS
     Route: 058
     Dates: start: 19980101, end: 20080401
  2. ENBREL [Suspect]
     Indication: POLYARTHRITIS
  3. EUTHYROX [Concomitant]
     Indication: HYPOTHYROIDISM
     Route: 048
     Dates: end: 20080616
  4. EUTHYROX [Concomitant]
     Route: 048
     Dates: start: 20080617

REACTIONS (4)
  - CAESAREAN SECTION [None]
  - DRUG EXPOSURE DURING PREGNANCY [None]
  - PRE-ECLAMPSIA [None]
  - TWIN PREGNANCY [None]
